FAERS Safety Report 13889500 (Version 1)
Quarter: 2017Q3

REPORT INFORMATION
  Report Type: Spontaneous
  Country: US (occurrence: US)
  Receive Date: 20170822
  Receipt Date: 20170822
  Transmission Date: 20171127
  Serious: No
  Sender: FDA-Public Use
  Company Number: US-ENDO PHARMACEUTICALS INC-2015-003581

PATIENT
  Age: 62 Year
  Sex: Male
  Weight: 88.53 kg

DRUGS (2)
  1. LUPRON [Concomitant]
     Active Substance: LEUPROLIDE ACETATE
     Indication: PROSTATE CANCER
  2. TESTOPEL [Suspect]
     Active Substance: TESTOSTERONE
     Indication: HYPOGONADISM
     Dosage: 6 PELLETS INSERTED, 75 MG PER PELLET
     Route: 058
     Dates: start: 20150917

REACTIONS (5)
  - Implant site pain [Unknown]
  - Implant site infection [Recovered/Resolved]
  - Implant site haemorrhage [Recovered/Resolved]
  - Implant site extravasation [Recovered/Resolved]
  - Device expulsion [Unknown]

NARRATIVE: CASE EVENT DATE: 20151006
